FAERS Safety Report 18842084 (Version 12)
Quarter: 2021Q3

REPORT INFORMATION
  Report Type: Spontaneous
  Country: CA (occurrence: CA)
  Receive Date: 20210204
  Receipt Date: 20210820
  Transmission Date: 20211014
  Serious: Yes (Other)
  Sender: FDA-Public Use
  Company Number: CA-CELLTRION INC.-2021CA001349

PATIENT

DRUGS (6)
  1. INFLECTRA [Suspect]
     Active Substance: INFLIXIMAB-DYYB
     Indication: CROHN^S DISEASE
     Dosage: 5 MG/KG WEEKS 0,2,6 THEN EVERY 8 WEEKS (Q 0 WEEK DOSE)
     Route: 042
     Dates: start: 20210111, end: 20210111
  2. INFLECTRA [Suspect]
     Active Substance: INFLIXIMAB-DYYB
     Dosage: 5 MG/KG WEEKS 0,2,6 THEN EVERY 8 WEEKS (Q 2 WEEK DOSE)
     Route: 042
     Dates: start: 20210126, end: 20210126
  3. INFLECTRA [Suspect]
     Active Substance: INFLIXIMAB-DYYB
     Dosage: 5 MG/KG 0, 2, 6 AND THEN EVERY 8 WEEKS
     Route: 042
     Dates: start: 20210810
  4. ABILIFY [Concomitant]
     Active Substance: ARIPIPRAZOLE
     Dosage: 1 DF
     Route: 065
  5. INFLECTRA [Suspect]
     Active Substance: INFLIXIMAB-DYYB
     Dosage: 5 MG/KG WEEKS 0,2,6 THEN EVERY 8 WEEKS
     Route: 042
     Dates: start: 20210226, end: 20210226
  6. INFLECTRA [Suspect]
     Active Substance: INFLIXIMAB-DYYB
     Dosage: 5 MG/KG WEEKS 0,2,6 THEN EVERY 8 WEEKS
     Route: 042
     Dates: start: 20210614

REACTIONS (8)
  - Discomfort [Unknown]
  - Pain [Recovering/Resolving]
  - Tooth abscess [Recovering/Resolving]
  - Weight decreased [Not Recovered/Not Resolved]
  - Swelling [Unknown]
  - Decreased appetite [Not Recovered/Not Resolved]
  - Inappropriate schedule of product administration [Unknown]
  - Weight increased [Unknown]

NARRATIVE: CASE EVENT DATE: 2021
